FAERS Safety Report 9371168 (Version 1)
Quarter: 2013Q2

REPORT INFORMATION
  Report Type: Spontaneous
  Country: US (occurrence: None)
  Receive Date: 20130626
  Receipt Date: 20130626
  Transmission Date: 20140414
  Serious: No
  Sender: FDA-Public Use
  Company Number: None

PATIENT
  Age: 41 Year
  Sex: Female
  Weight: 68.04 kg

DRUGS (2)
  1. RISPERDONE 4MG 1 HS [Suspect]
     Indication: DEPRESSION
     Dosage: 3
     Route: 048
     Dates: start: 20130201, end: 20130501
  2. RISPERDONE 4MG 1 HS [Suspect]
     Indication: OBSESSIVE-COMPULSIVE DISORDER
     Dosage: 3
     Route: 048
     Dates: start: 20130201, end: 20130501

REACTIONS (2)
  - Condition aggravated [None]
  - Product substitution issue [None]
